FAERS Safety Report 24027092 (Version 2)
Quarter: 2024Q3

REPORT INFORMATION
  Report Type: Spontaneous
  Country: ID (occurrence: ID)
  Receive Date: 20240628
  Receipt Date: 20240710
  Transmission Date: 20241016
  Serious: No
  Sender: ROCHE
  Company Number: ID-ROCHE-3568455

PATIENT
  Age: 56 Year
  Sex: Male

DRUGS (1)
  1. ALECENSA [Suspect]
     Active Substance: ALECTINIB HYDROCHLORIDE
     Indication: Non-small cell lung cancer
     Dosage: ALECENSA 2 X 600 MG FOR 2 WEEKS
     Route: 065

REACTIONS (2)
  - Dyspnoea [Recovered/Resolved]
  - Goitre [Recovered/Resolved]
